FAERS Safety Report 8131410-7 (Version None)
Quarter: 2012Q1

REPORT INFORMATION
  Report Type: 
  Country: None (occurrence: None)
  Receive Date: 20120213
  Receipt Date: 20120203
  Transmission Date: 20120608
  Serious: Yes (Hospitalization)
  Sender: FDA-Public Use
  Company Number: US-BAYER-2011-063014

PATIENT
  Sex: Female

DRUGS (6)
  1. CORGARD [Concomitant]
     Dosage: 40 MG, QD
     Route: 048
  2. IMITREX [Concomitant]
     Dosage: 100 MG, PRN
     Route: 048
  3. TRAMADOL HCL [Concomitant]
     Dosage: 50 MG, Q4HR
     Route: 048
  4. BENTYL [Concomitant]
     Dosage: 20 MG, QID
     Route: 048
     Dates: start: 20071026
  5. CORGARD [Concomitant]
     Dosage: 80 MG, QD
     Route: 048
  6. YASMIN [Suspect]

REACTIONS (4)
  - MESENTERIC VEIN THROMBOSIS [None]
  - INJURY [None]
  - PAIN [None]
  - PORTAL VEIN THROMBOSIS [None]
